FAERS Safety Report 4629938-7 (Version None)
Quarter: 2005Q2

REPORT INFORMATION
  Report Type: 
  Country: None (occurrence: None)
  Receive Date: 20050408
  Receipt Date: 20050113
  Transmission Date: 20051028
  Serious: Yes (Other)
  Sender: FDA-Public Use
  Company Number: BR-ROCHE-392496

PATIENT
  Age: 30 Year
  Sex: Male
  Weight: 65 kg

DRUGS (1)
  1. ROACUTAN [Suspect]
     Indication: ACNE
     Route: 048
     Dates: start: 20040815, end: 20041215

REACTIONS (6)
  - ABDOMINAL PAIN UPPER [None]
  - BLOOD BILIRUBIN UNCONJUGATED INCREASED [None]
  - HAEMANGIOMA OF LIVER [None]
  - HEPATIC NEOPLASM [None]
  - NAUSEA [None]
  - SPLENOMEGALY [None]
